FAERS Safety Report 20775510 (Version 1)
Quarter: 2022Q2

REPORT INFORMATION
  Report Type: Spontaneous
  Country: US (occurrence: None)
  Receive Date: 20220502
  Receipt Date: 20220502
  Transmission Date: 20220720
  Serious: Yes (Hospitalization)
  Sender: FDA-Public Use
  Company Number: None

PATIENT
  Sex: Male

DRUGS (2)
  1. AUSTEDO [Suspect]
     Active Substance: DEUTETRABENAZINE
     Indication: Dyskinesia
     Dosage: FREQUENCY : TWICE A DAY?
     Route: 048
     Dates: start: 20220208
  2. AUSTEDO [Suspect]
     Active Substance: DEUTETRABENAZINE
     Dosage: FREQUENCY : ONCE;?
     Route: 048

REACTIONS (3)
  - Therapy interrupted [None]
  - Tremor [None]
  - Hypotension [None]
